FAERS Safety Report 16304869 (Version 1)
Quarter: 2019Q2

REPORT INFORMATION
  Report Type: Spontaneous
  Country: US (occurrence: US)
  Receive Date: 20190406
  Receipt Date: 20190406
  Transmission Date: 20190711
  Serious: Yes (Hospitalization)
  Sender: FDA-Public Use
  Company Number: None

PATIENT
  Age: 66 Year
  Sex: Male
  Weight: 102.1 kg

DRUGS (1)
  1. CISPLATIN. [Suspect]
     Active Substance: CISPLATIN
     Dates: end: 20190219

REACTIONS (4)
  - Pyrexia [None]
  - Staphylococcus test positive [None]
  - Cough [None]
  - Atrial fibrillation [None]

NARRATIVE: CASE EVENT DATE: 20190322
